FAERS Safety Report 12349286 (Version 1)
Quarter: 2016Q2

REPORT INFORMATION
  Report Type: Spontaneous
  Country: US (occurrence: US)
  Receive Date: 20160509
  Receipt Date: 20160509
  Transmission Date: 20160815
  Serious: No
  Sender: FDA-Public Use
  Company Number: US-ASTRAZENECA-2016SE32849

PATIENT
  Sex: Female
  Weight: 93 kg

DRUGS (15)
  1. CHEWABLE MULTIVITAMIN [Concomitant]
     Indication: GASTRIC BYPASS
     Route: 048
     Dates: start: 2016
  2. B12 WITH FOLIC ACID [Concomitant]
     Indication: GASTRIC BYPASS
     Route: 048
     Dates: start: 2016
  3. ONGLYZA [Suspect]
     Active Substance: SAXAGLIPTIN HYDROCHLORIDE
     Indication: TYPE 2 DIABETES MELLITUS
     Route: 048
  4. METOPROLOL TARTRATE. [Concomitant]
     Active Substance: METOPROLOL TARTRATE
     Indication: BLOOD PRESSURE ABNORMAL
     Route: 048
  5. LEVOTHYROXINE. [Concomitant]
     Active Substance: LEVOTHYROXINE
     Indication: HYPOTHYROIDISM
     Route: 048
  6. LIPITOR [Concomitant]
     Active Substance: ATORVASTATIN CALCIUM
     Indication: BLOOD CHOLESTEROL ABNORMAL
     Route: 048
  7. ASPIRIN. [Concomitant]
     Active Substance: ASPIRIN
     Route: 048
  8. FARXIGA [Suspect]
     Active Substance: DAPAGLIFLOZIN PROPANEDIOL
     Indication: TYPE 2 DIABETES MELLITUS
     Dosage: DAILY
     Route: 048
  9. METFORMIN [Concomitant]
     Active Substance: METFORMIN HYDROCHLORIDE
     Indication: TYPE 2 DIABETES MELLITUS
     Route: 048
  10. LOSARTAN. [Concomitant]
     Active Substance: LOSARTAN
     Indication: BLOOD PRESSURE ABNORMAL
     Route: 048
  11. NITROGLYCERIN. [Concomitant]
     Active Substance: NITROGLYCERIN
     Indication: CARDIAC DISORDER
     Route: 048
  12. DAIVONEX [Concomitant]
     Active Substance: CALCIPOTRIENE
     Indication: PSORIASIS
     Route: 061
  13. CHEWABLE ION WITH VITAMIN C [Concomitant]
     Indication: GASTRIC BYPASS
     Route: 048
     Dates: start: 2016
  14. VITAMIN D [Concomitant]
     Active Substance: CHOLECALCIFEROL
     Indication: GASTRIC BYPASS
     Dates: start: 2016
  15. SINGULAIR [Concomitant]
     Active Substance: MONTELUKAST SODIUM
     Indication: CHRONIC OBSTRUCTIVE PULMONARY DISEASE
     Route: 055

REACTIONS (7)
  - Weight decreased [Unknown]
  - Body height decreased [Unknown]
  - Glycosylated haemoglobin decreased [Unknown]
  - Anaemia [Unknown]
  - Amnesia [Unknown]
  - Blood glucose increased [Unknown]
  - Insomnia [Unknown]
